FAERS Safety Report 17695916 (Version 1)
Quarter: 2020Q2

REPORT INFORMATION
  Report Type: Spontaneous
  Country: US (occurrence: US)
  Receive Date: 20200423
  Receipt Date: 20200423
  Transmission Date: 20200714
  Serious: No
  Sender: FDA-Public Use
  Company Number: US-ACCORD-132705

PATIENT
  Age: 77 Year
  Sex: Male

DRUGS (1)
  1. OXYBUTYNIN ACCORD [Suspect]
     Active Substance: OXYBUTYNIN
     Indication: NOCTURIA
     Dosage: 5 MG, THEN 10 MG AND CURRENTLY 15 MG TWICE A DAY

REACTIONS (1)
  - Drug ineffective [Unknown]
